FAERS Safety Report 10219269 (Version 1)
Quarter: 2014Q2

REPORT INFORMATION
  Report Type: Spontaneous
  Country: KR (occurrence: None)
  Receive Date: 20140603
  Receipt Date: 20140603
  Transmission Date: 20141212
  Serious: Yes (Hospitalization)
  Sender: FDA-Public Use
  Company Number: IPC201405-000252

PATIENT
  Age: 68 Year
  Sex: Female

DRUGS (5)
  1. HYDROCHLOROTHIAZIDE (HYDROCHLOROTHIAZIDE) (HYDROCHLOROTHIAZIDE) [Suspect]
     Indication: HYPERTENSION
  2. AMLODIPINE BESILATE (AMLODIPINE BESILATE) (AMLODIPINE BESILATE) [Suspect]
     Indication: HYPERTENSION
  3. LIOTHYRONINE (LLIOTHYRONINE) (LIOTHYRONINE) [Concomitant]
  4. LEVOTHYROXINE [Concomitant]
  5. TELMISARTAN (TELMISARTAN) (TELMISARTAN) [Suspect]
     Indication: HYPERTENSION

REACTIONS (10)
  - Hyponatraemia [None]
  - Nausea [None]
  - Vomiting [None]
  - Depressed level of consciousness [None]
  - Hypothyroidism [None]
  - Papillary thyroid cancer [None]
  - Metastases to lymph nodes [None]
  - Blood pressure systolic increased [None]
  - Heart rate increased [None]
  - Blood glucose increased [None]
